FAERS Safety Report 9705428 (Version 2)
Quarter: 2013Q4

REPORT INFORMATION
  Report Type: Spontaneous
  Country: US (occurrence: US)
  Receive Date: 20131122
  Receipt Date: 20131122
  Transmission Date: 20140711
  Serious: No
  Sender: FDA-Public Use
  Company Number: US-GILEAD-2013-0086096

PATIENT
  Sex: Female

DRUGS (2)
  1. LETAIRIS [Suspect]
     Indication: PULMONARY ARTERIAL HYPERTENSION
     Dosage: 5 MG, QD
     Route: 048
     Dates: start: 20130131
  2. REVATIO [Concomitant]

REACTIONS (5)
  - Malaise [Unknown]
  - Nasopharyngitis [Unknown]
  - Sinusitis [Unknown]
  - Face oedema [Unknown]
  - Local swelling [Unknown]
